FAERS Safety Report 5086341-6 (Version None)
Quarter: 2006Q3

REPORT INFORMATION
  Report Type: 
  Country: None (occurrence: None)
  Receive Date: 20060821
  Receipt Date: 20060821
  Transmission Date: 20061208
  Serious: No
  Sender: FDA-Public Use
  Company Number: None

PATIENT

DRUGS (1)
  1. EXUBERA [Suspect]
     Dosage: INHALANT

REACTIONS (1)
  - MEDICATION ERROR [None]
